FAERS Safety Report 20676598 (Version 2)
Quarter: 2022Q3

REPORT INFORMATION
  Report Type: Spontaneous
  Country: US (occurrence: US)
  Receive Date: 20220406
  Receipt Date: 20220701
  Transmission Date: 20221027
  Serious: No
  Sender: FDA-Public Use
  Company Number: US-drreddys-SPO/USA/22/0148381

PATIENT
  Sex: Female

DRUGS (6)
  1. SUMATRIPTAN [Suspect]
     Active Substance: SUMATRIPTAN
     Indication: Product used for unknown indication
     Dosage: 6MG/0.5ML?6-2 PACK
  2. SUMATRIPTAN [Suspect]
     Active Substance: SUMATRIPTAN
     Dosage: 6MG/0.5ML?1-2 PACK
  3. SUMATRIPTAN [Suspect]
     Active Substance: SUMATRIPTAN
     Dosage: 6MG/0.5ML?6-2 PACK
  4. SUMATRIPTAN [Suspect]
     Active Substance: SUMATRIPTAN
     Dosage: 6MG/0.5ML?6-2 PACK
  5. SUMATRIPTAN [Suspect]
     Active Substance: SUMATRIPTAN
     Dosage: 6MG/0.5ML?6-2 PACK
  6. SUMATRIPTAN [Suspect]
     Active Substance: SUMATRIPTAN
     Dosage: 6MG/0.5ML?6-2 PACK

REACTIONS (3)
  - Product dose omission issue [Unknown]
  - Product leakage [Unknown]
  - Product quality issue [Unknown]
